FAERS Safety Report 19734461 (Version 1)
Quarter: 2021Q3

REPORT INFORMATION
  Report Type: Spontaneous
  Country: US (occurrence: US)
  Receive Date: 20210823
  Receipt Date: 20210823
  Transmission Date: 20211014
  Serious: Yes (Other)
  Sender: FDA-Public Use
  Company Number: US-SUN PHARMACEUTICAL INDUSTRIES LTD-2021R1-308645

PATIENT
  Age: 61 Year
  Sex: Male

DRUGS (6)
  1. VASOPRESSIN. [Suspect]
     Active Substance: VASOPRESSIN
     Indication: SEPTIC SHOCK
     Route: 065
  2. DOBUTAMINE [Suspect]
     Active Substance: DOBUTAMINE HYDROCHLORIDE
     Indication: SEPTIC SHOCK
     Route: 065
  3. TICAGRELOR. [Suspect]
     Active Substance: TICAGRELOR
     Indication: ACUTE CORONARY SYNDROME
     Route: 065
  4. NORADRENALINE [Suspect]
     Active Substance: NOREPINEPHRINE
     Indication: SEPSIS
     Route: 065
  5. HEPARIN [Suspect]
     Active Substance: HEPARIN SODIUM
     Indication: PULMONARY EMBOLISM
     Route: 065
  6. ASPIRIN. [Suspect]
     Active Substance: ASPIRIN
     Indication: ACUTE CORONARY SYNDROME
     Route: 065

REACTIONS (1)
  - Condition aggravated [Unknown]
